FAERS Safety Report 16587007 (Version 4)
Quarter: 2021Q2

REPORT INFORMATION
  Report Type: Spontaneous
  Country: US (occurrence: US)
  Receive Date: 20190717
  Receipt Date: 20210617
  Transmission Date: 20210716
  Serious: No
  Sender: FDA-Public Use
  Company Number: US-JNJFOC-20190722836

PATIENT
  Age: 90 Year
  Sex: Male

DRUGS (4)
  1. XTANDI [Interacting]
     Active Substance: ENZALUTAMIDE
     Route: 048
     Dates: end: 202007
  2. XARELTO [Suspect]
     Active Substance: RIVAROXABAN
     Indication: PRODUCT USED FOR UNKNOWN INDICATION
     Route: 048
  3. XTANDI [Interacting]
     Active Substance: ENZALUTAMIDE
     Indication: PROSTATE CANCER
     Route: 048
  4. XTANDI [Interacting]
     Active Substance: ENZALUTAMIDE
     Route: 048
     Dates: start: 2019

REACTIONS (3)
  - Off label use [Unknown]
  - Drug interaction [Unknown]
  - Underdose [Unknown]

NARRATIVE: CASE EVENT DATE: 2019
